FAERS Safety Report 7474604-6 (Version None)
Quarter: 2011Q2

REPORT INFORMATION
  Report Type: 
  Country: None (occurrence: None)
  Receive Date: 20110503
  Receipt Date: 20110418
  Transmission Date: 20111010
  Serious: Yes (Disabling, Other)
  Sender: FDA-Public Use
  Company Number: 031740

PATIENT
  Age: 56 Year
  Sex: Male

DRUGS (8)
  1. NAPROXEN [Concomitant]
  2. FOLIC ACID [Concomitant]
  3. SIMVASTATIN [Concomitant]
  4. CIMZIA [Suspect]
     Dosage: (1 DF  1X/2 WEEKS SUBLINGUAL)
     Route: 060
     Dates: start: 20101112, end: 20110107
  5. METHOTREXATE [Concomitant]
  6. ASPIRIN [Concomitant]
  7. OMEPRAZOLE [Concomitant]
  8. PREDNISOLONE [Concomitant]

REACTIONS (1)
  - PUSTULAR PSORIASIS [None]
